FAERS Safety Report 21058953 (Version 1)
Quarter: 2022Q3

REPORT INFORMATION
  Report Type: Spontaneous
  Country: US (occurrence: None)
  Receive Date: 20220708
  Receipt Date: 20220708
  Transmission Date: 20221027
  Serious: Yes (Death, Life-Threatening)
  Sender: FDA-Public Use
  Company Number: None

PATIENT
  Age: 75 Year
  Sex: Male

DRUGS (1)
  1. PADCEV [Suspect]
     Active Substance: ENFORTUMAB VEDOTIN-EJFV
     Dosage: OTHER FREQUENCY : OTHER;?
     Route: 042
     Dates: start: 202206

REACTIONS (2)
  - Treatment delayed [None]
  - Economic problem [None]

NARRATIVE: CASE EVENT DATE: 20220705
